FAERS Safety Report 5909049-0 (Version None)
Quarter: 2008Q4

REPORT INFORMATION
  Report Type: 
  Country: None (occurrence: None)
  Receive Date: 20081001
  Receipt Date: 20080917
  Transmission Date: 20090506
  Serious: Yes (Other)
  Sender: FDA-Public Use
  Company Number: ENT 2008-0158

PATIENT
  Age: 72 Year
  Sex: Female

DRUGS (7)
  1. COMTAN [Suspect]
     Dosage: ORAL
     Route: 048
     Dates: start: 20080506
  2. LYRICA [Concomitant]
  3. LOPRESSOR [Concomitant]
  4. SINEMET [Concomitant]
  5. NORVASC [Concomitant]
  6. CELEXA [Concomitant]
  7. CALCIUM W/VITAMIN D NOS [Concomitant]

REACTIONS (1)
  - FAECES DISCOLOURED [None]
